FAERS Safety Report 18148560 (Version 1)
Quarter: 2020Q3

REPORT INFORMATION
  Report Type: Report from Study
  Country: US (occurrence: US)
  Receive Date: 20200814
  Receipt Date: 20200814
  Transmission Date: 20201103
  Serious: Yes (Other)
  Sender: FDA-Public Use
  Company Number: US-HORIZON-TEP-1199-2020

PATIENT
  Age: 70 Year
  Sex: Female

DRUGS (13)
  1. DIETHYLPROPION [Concomitant]
     Active Substance: DIETHYLPROPION
  2. XANAX [Concomitant]
     Active Substance: ALPRAZOLAM
  3. LEVOTHYROXINE. [Concomitant]
     Active Substance: LEVOTHYROXINE
  4. NEXIUM GENERIC [Concomitant]
     Active Substance: ESOMEPRAZOLE
  5. TEPEZZA [Suspect]
     Active Substance: TEPROTUMUMAB-TRBW
     Indication: ENDOCRINE OPHTHALMOPATHY
     Route: 042
     Dates: start: 20200310
  6. GARLIQUE [Concomitant]
     Active Substance: GARLIC
  7. ALEVE/ASPIRIN [Concomitant]
  8. FIBER [Concomitant]
     Active Substance: PSYLLIUM HUSK
  9. TURMERIC [Concomitant]
     Active Substance: HERBALS\TURMERIC
  10. SELENIUM [Concomitant]
     Active Substance: SELENIUM
  11. RESVERATROL [Concomitant]
     Active Substance: DIETARY SUPPLEMENT\RESVERATROL
  12. TRAZODONE [Concomitant]
     Active Substance: TRAZODONE HYDROCHLORIDE
  13. CALCIUM [Concomitant]
     Active Substance: CALCIUM

REACTIONS (13)
  - Cognitive disorder [Not Recovered/Not Resolved]
  - Oral mucosal blistering [Recovered/Resolved]
  - Muscle spasms [Unknown]
  - Myalgia [Not Recovered/Not Resolved]
  - Constipation [Recovering/Resolving]
  - Food allergy [Recovered/Resolved]
  - Condition aggravated [Unknown]
  - Inappropriate schedule of product administration [Unknown]
  - Tongue blistering [Recovered/Resolved]
  - Dizziness [Not Recovered/Not Resolved]
  - Insomnia [Recovered/Resolved]
  - Neuropathy peripheral [Recovered/Resolved]
  - Hypoacusis [Unknown]

NARRATIVE: CASE EVENT DATE: 20200723
